FAERS Safety Report 10537492 (Version 2)
Quarter: 2014Q4

REPORT INFORMATION
  Report Type: Spontaneous
  Country: US (occurrence: None)
  Receive Date: 20141021
  Receipt Date: 20141107
  Transmission Date: 20150529
  Serious: Yes (Hospitalization)
  Sender: FDA-Public Use
  Company Number: 2014-US-013236

PATIENT
  Age: 14 Year
  Sex: Male

DRUGS (6)
  1. XYREM [Suspect]
     Active Substance: SODIUM OXYBATE
     Indication: CATAPLEXY
     Route: 048
     Dates: start: 201408, end: 2014
  2. XYREM [Suspect]
     Active Substance: SODIUM OXYBATE
     Indication: NARCOLEPSY
     Route: 048
     Dates: start: 201408, end: 2014
  3. LATUDA (LURASIDONE HYDROCHLORIDE) [Concomitant]
  4. SINGULAIR (MONTELUKAST SODIUM) [Concomitant]
  5. PROVIGIL [Concomitant]
     Active Substance: MODAFINIL
  6. TOPAMAX [Concomitant]
     Active Substance: TOPIRAMATE

REACTIONS (4)
  - Abnormal behaviour [None]
  - Mental disorder [None]
  - Off label use [None]
  - Emotional disorder [None]

NARRATIVE: CASE EVENT DATE: 20141008
